FAERS Safety Report 25952045 (Version 2)
Quarter: 2025Q4

REPORT INFORMATION
  Report Type: Report from Study
  Country: EU (occurrence: EU)
  Receive Date: 20251023
  Receipt Date: 20251105
  Transmission Date: 20260117
  Serious: Yes (Hospitalization)
  Sender: ABBVIE
  Company Number: EU-ABBVIE-6510948

PATIENT
  Age: 41 Year
  Sex: Female
  Weight: 42.5 kg

DRUGS (1)
  1. RISANKIZUMAB [Suspect]
     Active Substance: RISANKIZUMAB
     Indication: Crohn^s disease
     Route: 042
     Dates: start: 20241023

REACTIONS (1)
  - Stenosis [Recovered/Resolved with Sequelae]

NARRATIVE: CASE EVENT DATE: 20241129
